FAERS Safety Report 21288471 (Version 2)
Quarter: 2022Q4

REPORT INFORMATION
  Report Type: Spontaneous
  Country: US (occurrence: US)
  Receive Date: 20220902
  Receipt Date: 20221017
  Transmission Date: 20230113
  Serious: No
  Sender: FDA-Public Use
  Company Number: US-ABBVIE-22K-163-4442926-00

PATIENT
  Sex: Female

DRUGS (2)
  1. IMBRUVICA [Suspect]
     Active Substance: IBRUTINIB
     Indication: Product used for unknown indication
     Dosage: DAILY
     Route: 048
  2. Gentamicin nasal spray [Concomitant]
     Indication: Product used for unknown indication

REACTIONS (1)
  - Staphylococcal infection [Not Recovered/Not Resolved]
